FAERS Safety Report 7609629-0 (Version None)
Quarter: 2011Q3

REPORT INFORMATION
  Report Type: 
  Country: None (occurrence: None)
  Receive Date: 20110714
  Receipt Date: 20110706
  Transmission Date: 20111222
  Serious: Yes (Hospitalization)
  Sender: FDA-Public Use
  Company Number: FR-BAYER-2011-059146

PATIENT
  Age: 55 Year
  Sex: Female

DRUGS (2)
  1. PREDNISOLONE [Concomitant]
     Dosage: 60 MG, ONCE
     Route: 048
     Dates: start: 20110309, end: 20110309
  2. MOXIFLOXACIN HCL [Suspect]
     Indication: SINUSITIS
     Dosage: 1 DF, ONCE
     Route: 048
     Dates: start: 20110309, end: 20110309

REACTIONS (7)
  - ABDOMINAL PAIN [None]
  - RASH ERYTHEMATOUS [None]
  - DIARRHOEA [None]
  - CHILLS [None]
  - HYPOTHERMIA [None]
  - MALAISE [None]
  - HYPOTENSION [None]
